FAERS Safety Report 23743007 (Version 1)
Quarter: 2024Q2

REPORT INFORMATION
  Report Type: Spontaneous
  Country: FR (occurrence: FR)
  Receive Date: 20240415
  Receipt Date: 20240415
  Transmission Date: 20240716
  Serious: Yes (Death)
  Sender: FDA-Public Use
  Company Number: FR-JNJFOC-20240377941

PATIENT
  Age: 95 Year
  Sex: Female

DRUGS (2)
  1. FUROSEMIDE [Interacting]
     Active Substance: FUROSEMIDE
     Indication: Cardiac failure
     Dosage: UNK
     Route: 065
  2. RISPERDAL [Interacting]
     Active Substance: RISPERIDONE
     Indication: Dementia
     Dosage: 0.25 MILLIGRAM, QD
     Route: 048

REACTIONS (3)
  - Acute kidney injury [Fatal]
  - Extrapyramidal disorder [Unknown]
  - Drug interaction [Unknown]
